FAERS Safety Report 7393663-2 (Version None)
Quarter: 2011Q2

REPORT INFORMATION
  Report Type: 
  Country: None (occurrence: None)
  Receive Date: 20110405
  Receipt Date: 20091122
  Transmission Date: 20111010
  Serious: Yes (Death, Other)
  Sender: FDA-Public Use
  Company Number: US-BAYER-200940283NA

PATIENT
  Sex: Male
  Weight: 54 kg

DRUGS (19)
  1. PREDNISONE [Concomitant]
  2. ASPIRIN [Concomitant]
     Dosage: UNK
     Route: 048
     Dates: start: 20030523
  3. LOVENOX [Concomitant]
     Dosage: UNK
     Route: 058
     Dates: start: 20030523
  4. DIOVAN [Concomitant]
  5. CARDURA [Concomitant]
  6. PLAVIX [Concomitant]
     Dosage: UNK
     Route: 048
     Dates: start: 20030523
  7. MECLIZINE [Concomitant]
     Dosage: UNK
  8. NITROGLYCERIN [Concomitant]
     Dosage: DRIP
  9. LASIX [Concomitant]
     Dosage: 20 MG/ 40 MG/ 20 MG
     Route: 042
     Dates: start: 20030525
  10. ISOSORBIDE MONONITRATE [Concomitant]
  11. AMIODARONE HCL [Concomitant]
     Dosage: BOLUS/DRIP
     Route: 042
     Dates: start: 20030525
  12. ZESTRIL [Concomitant]
  13. DOBUTAMINE [Concomitant]
     Dosage: DRIP
     Route: 042
     Dates: start: 20030525
  14. IMDUR [Concomitant]
     Dosage: UNK
     Route: 048
     Dates: start: 20030523
  15. LASIX [Concomitant]
     Dosage: 20 MG, UNK
     Route: 048
     Dates: start: 20030523
  16. PROTAMINE SULFATE [Concomitant]
     Dosage: UNK
     Route: 042
     Dates: start: 20030525
  17. TRASYLOL [Suspect]
     Indication: CORONARY ARTERY BYPASS
     Dosage: 600MK VIA CADIOPULMONARY BYPASS PER PERFUSION RECORDS
     Route: 042
     Dates: start: 20030525, end: 20030525
  18. NITROGLYCERIN [Concomitant]
     Dosage: UNK
     Route: 042
     Dates: start: 20030523
  19. LANOXIN [Concomitant]

REACTIONS (13)
  - ANHEDONIA [None]
  - MULTI-ORGAN FAILURE [None]
  - RENAL IMPAIRMENT [None]
  - RENAL FAILURE [None]
  - EMOTIONAL DISTRESS [None]
  - STRESS [None]
  - RENAL INJURY [None]
  - PAIN [None]
  - DEATH [None]
  - INJURY [None]
  - FEAR [None]
  - ANXIETY [None]
  - UNEVALUABLE EVENT [None]
